FAERS Safety Report 7506754-X (Version None)
Quarter: 2011Q2

REPORT INFORMATION
  Report Type: 
  Country: None (occurrence: None)
  Receive Date: 20110526
  Receipt Date: 20110510
  Transmission Date: 20111010
  Serious: No
  Sender: FDA-Public Use
  Company Number: US-B.I. PHARMACEUTICALS,INC./RIDGEFIELD-2011-BP-09551BP

PATIENT
  Sex: Female

DRUGS (18)
  1. PROZAC [Concomitant]
  2. TOPAMAX [Concomitant]
  3. MULTIPLE VITAMIN [Concomitant]
  4. SIMETHICONE [Concomitant]
  5. TOPROL-XL [Concomitant]
  6. SYNTHROID [Concomitant]
  7. SPIRIVA [Suspect]
     Indication: CHRONIC OBSTRUCTIVE PULMONARY DISEASE
     Dosage: 18 MCG
     Dates: start: 20101201
  8. SPIRIVA [Suspect]
     Indication: BRONCHITIS
  9. VENTOLIN [Concomitant]
  10. TYLENOL APF [Concomitant]
  11. CHLORPHENIRAMINE MALEATE [Concomitant]
  12. CALCIUM CITRATE + D [Concomitant]
  13. PULMICORT [Concomitant]
  14. SPIRIVA [Suspect]
     Indication: ASTHMA
  15. CHROMIUM PICOLINATE [Concomitant]
  16. DRAMAMINE [Concomitant]
  17. SINGULAIR [Concomitant]
  18. B 12 DOTS [Concomitant]

REACTIONS (1)
  - DRUG INEFFECTIVE [None]
